FAERS Safety Report 6049502-5 (Version None)
Quarter: 2009Q1

REPORT INFORMATION
  Report Type: 
  Country: None (occurrence: None)
  Receive Date: 20090121
  Receipt Date: 20090105
  Transmission Date: 20090719
  Serious: Yes (Other)
  Sender: FDA-Public Use
  Company Number: 2009S1000099

PATIENT
  Age: 60 Year
  Sex: Male

DRUGS (4)
  1. METFORMIN HCL [Suspect]
     Indication: TYPE 2 DIABETES MELLITUS
     Dosage: 500 MG; TWICE A DAY ORAL
     Route: 048
     Dates: start: 20080101
  2. SIMVASTATIN [Concomitant]
  3. PERINDOPRIL ERBUMINE [Concomitant]
  4. ASPIRIN [Concomitant]

REACTIONS (4)
  - ARTERIAL DISORDER [None]
  - DYSPNOEA [None]
  - FATIGUE [None]
  - HUNGER [None]
